FAERS Safety Report 11071527 (Version 1)
Quarter: 2015Q2

REPORT INFORMATION
  Report Type: Spontaneous
  Country: US (occurrence: None)
  Receive Date: 20150427
  Receipt Date: 20150427
  Transmission Date: 20150821
  Serious: No
  Sender: FDA-Public Use
  Company Number: None

PATIENT
  Age: 30 Year
  Sex: Female
  Weight: 143 kg

DRUGS (1)
  1. MIRENA [Suspect]
     Active Substance: LEVONORGESTREL
     Indication: CONTRACEPTION
     Route: 067
     Dates: start: 20100315, end: 20150408

REACTIONS (10)
  - Heart rate increased [None]
  - Pelvic pain [None]
  - Weight increased [None]
  - Pain [None]
  - Libido decreased [None]
  - Dyspnoea [None]
  - Dyspareunia [None]
  - Abdominal pain [None]
  - Hypersensitivity [None]
  - Embedded device [None]

NARRATIVE: CASE EVENT DATE: 20150408
